FAERS Safety Report 4622307-5 (Version None)
Quarter: 2005Q1

REPORT INFORMATION
  Report Type: 
  Country: None (occurrence: None)
  Receive Date: 20050324
  Receipt Date: 20050324
  Transmission Date: 20050727
  Serious: Yes (Other)
  Sender: FDA-Public Use
  Company Number: None

PATIENT
  Age: 92 Year
  Sex: Female
  Weight: 58.1965 kg

DRUGS (1)
  1. GLYCOLAX [Suspect]
     Indication: CONSTIPATION
     Dosage: 1 SCOOP ORALLY ONCE DAILY
     Route: 048
     Dates: start: 20050204, end: 20050311

REACTIONS (2)
  - ABDOMINAL PAIN [None]
  - THERAPEUTIC PRODUCT INEFFECTIVE [None]
